FAERS Safety Report 7638498-8 (Version None)
Quarter: 2011Q3

REPORT INFORMATION
  Report Type: 
  Country: None (occurrence: None)
  Receive Date: 20110727
  Receipt Date: 20110713
  Transmission Date: 20111222
  Serious: Yes (Other)
  Sender: FDA-Public Use
  Company Number: PHHY2011CA61059

PATIENT
  Sex: Male

DRUGS (1)
  1. ALISKIREN [Suspect]
     Dosage: 150 MG, UNK
     Route: 048
     Dates: start: 20100922

REACTIONS (2)
  - CARDIAC FAILURE [None]
  - DIABETES MELLITUS [None]
